FAERS Safety Report 11475697 (Version 1)
Quarter: 2015Q3

REPORT INFORMATION
  Report Type: Report from Study
  Country: ES (occurrence: ES)
  Receive Date: 20150909
  Receipt Date: 20150909
  Transmission Date: 20151125
  Serious: Yes (Other)
  Sender: FDA-Public Use
  Company Number: ES-ROCHE-1631434

PATIENT

DRUGS (52)
  1. CARBOPLATIN. [Suspect]
     Active Substance: CARBOPLATIN
     Indication: VASCULAR MALFORMATION
     Route: 065
  2. CARBOPLATIN. [Suspect]
     Active Substance: CARBOPLATIN
     Indication: CENTRAL NERVOUS SYSTEM NEOPLASM
  3. IRINOTECAN [Suspect]
     Active Substance: IRINOTECAN
     Indication: CENTRAL NERVOUS SYSTEM NEOPLASM
  4. TEMOZOLOMIDE. [Suspect]
     Active Substance: TEMOZOLOMIDE
     Indication: EWING^S SARCOMA
  5. IMATINIB [Suspect]
     Active Substance: IMATINIB
     Indication: CENTRAL NERVOUS SYSTEM NEOPLASM
  6. IMATINIB [Suspect]
     Active Substance: IMATINIB
     Indication: NEPHROBLASTOMA
  7. BEVACIZUMAB [Suspect]
     Active Substance: BEVACIZUMAB
     Indication: NEPHROBLASTOMA
  8. CISPLATIN. [Suspect]
     Active Substance: CISPLATIN
     Indication: VASCULAR MALFORMATION
     Route: 065
  9. CISPLATIN. [Suspect]
     Active Substance: CISPLATIN
     Indication: NEPHROBLASTOMA
  10. DOXORUBICIN [Suspect]
     Active Substance: DOXORUBICIN
     Indication: NEPHROBLASTOMA
  11. IMATINIB [Suspect]
     Active Substance: IMATINIB
     Indication: EWING^S SARCOMA
  12. CARBOPLATIN. [Suspect]
     Active Substance: CARBOPLATIN
     Indication: EWING^S SARCOMA
  13. IRINOTECAN [Suspect]
     Active Substance: IRINOTECAN
     Indication: VASCULAR MALFORMATION
     Route: 065
  14. ETOPOSIDE. [Suspect]
     Active Substance: ETOPOSIDE
     Indication: EWING^S SARCOMA
  15. VINBLASTINE [Suspect]
     Active Substance: VINBLASTINE
     Indication: VASCULAR MALFORMATION
     Route: 065
  16. CYCLOPHOSPHAMIDE. [Suspect]
     Active Substance: CYCLOPHOSPHAMIDE
     Indication: CENTRAL NERVOUS SYSTEM NEOPLASM
  17. CYCLOPHOSPHAMIDE. [Suspect]
     Active Substance: CYCLOPHOSPHAMIDE
     Indication: NEPHROBLASTOMA
  18. CYCLOPHOSPHAMIDE. [Suspect]
     Active Substance: CYCLOPHOSPHAMIDE
     Indication: NEPHROBLASTOMA
  19. DOXORUBICIN [Suspect]
     Active Substance: DOXORUBICIN
     Indication: CENTRAL NERVOUS SYSTEM NEOPLASM
  20. CISPLATIN. [Suspect]
     Active Substance: CISPLATIN
     Indication: CENTRAL NERVOUS SYSTEM NEOPLASM
  21. CISPLATIN. [Suspect]
     Active Substance: CISPLATIN
     Indication: EWING^S SARCOMA
  22. TOPOTECAN [Suspect]
     Active Substance: TOPOTECAN\TOPOTECAN HYDROCHLORIDE
     Indication: VASCULAR MALFORMATION
     Route: 065
  23. TOPOTECAN [Suspect]
     Active Substance: TOPOTECAN\TOPOTECAN HYDROCHLORIDE
     Indication: NEPHROBLASTOMA
  24. ETOPOSIDE. [Suspect]
     Active Substance: ETOPOSIDE
     Indication: NEPHROBLASTOMA
  25. VINBLASTINE [Suspect]
     Active Substance: VINBLASTINE
     Indication: EWING^S SARCOMA
  26. VINCRISTINE [Suspect]
     Active Substance: VINCRISTINE
     Indication: VASCULAR MALFORMATION
     Route: 065
  27. IFOSFAMIDE. [Suspect]
     Active Substance: IFOSFAMIDE
     Indication: VASCULAR MALFORMATION
     Route: 065
  28. IFOSFAMIDE. [Suspect]
     Active Substance: IFOSFAMIDE
     Indication: CENTRAL NERVOUS SYSTEM NEOPLASM
  29. IMATINIB [Suspect]
     Active Substance: IMATINIB
     Indication: VASCULAR MALFORMATION
     Route: 065
  30. BEVACIZUMAB [Suspect]
     Active Substance: BEVACIZUMAB
     Indication: VASCULAR MALFORMATION
     Dosage: MEDIAN BEVACIZUMAB DOSE PER INFUSION OF 9.25 MG/KG
     Route: 065
  31. BEVACIZUMAB [Suspect]
     Active Substance: BEVACIZUMAB
     Indication: CENTRAL NERVOUS SYSTEM NEOPLASM
  32. IRINOTECAN [Suspect]
     Active Substance: IRINOTECAN
     Indication: EWING^S SARCOMA
  33. TOPOTECAN [Suspect]
     Active Substance: TOPOTECAN\TOPOTECAN HYDROCHLORIDE
     Indication: CENTRAL NERVOUS SYSTEM NEOPLASM
  34. VINBLASTINE [Suspect]
     Active Substance: VINBLASTINE
     Indication: CENTRAL NERVOUS SYSTEM NEOPLASM
  35. DOXORUBICIN [Suspect]
     Active Substance: DOXORUBICIN
     Indication: EWING^S SARCOMA
  36. ETOPOSIDE. [Suspect]
     Active Substance: ETOPOSIDE
     Indication: VASCULAR MALFORMATION
     Route: 065
  37. TEMOZOLOMIDE. [Suspect]
     Active Substance: TEMOZOLOMIDE
     Indication: VASCULAR MALFORMATION
     Route: 065
  38. TEMOZOLOMIDE. [Suspect]
     Active Substance: TEMOZOLOMIDE
     Indication: CENTRAL NERVOUS SYSTEM NEOPLASM
  39. VINBLASTINE [Suspect]
     Active Substance: VINBLASTINE
     Indication: NEPHROBLASTOMA
  40. VINCRISTINE [Suspect]
     Active Substance: VINCRISTINE
     Indication: NEPHROBLASTOMA
  41. BEVACIZUMAB [Suspect]
     Active Substance: BEVACIZUMAB
     Indication: EWING^S SARCOMA
  42. IRINOTECAN [Suspect]
     Active Substance: IRINOTECAN
     Indication: NEPHROBLASTOMA
  43. CYCLOPHOSPHAMIDE. [Suspect]
     Active Substance: CYCLOPHOSPHAMIDE
     Indication: VASCULAR MALFORMATION
     Route: 065
  44. IFOSFAMIDE. [Suspect]
     Active Substance: IFOSFAMIDE
     Indication: EWING^S SARCOMA
  45. DOXORUBICIN [Suspect]
     Active Substance: DOXORUBICIN
     Indication: VASCULAR MALFORMATION
     Route: 065
  46. CARBOPLATIN. [Suspect]
     Active Substance: CARBOPLATIN
     Indication: NEPHROBLASTOMA
  47. TOPOTECAN [Suspect]
     Active Substance: TOPOTECAN\TOPOTECAN HYDROCHLORIDE
     Indication: EWING^S SARCOMA
  48. ETOPOSIDE. [Suspect]
     Active Substance: ETOPOSIDE
     Indication: CENTRAL NERVOUS SYSTEM NEOPLASM
  49. TEMOZOLOMIDE. [Suspect]
     Active Substance: TEMOZOLOMIDE
     Indication: NEPHROBLASTOMA
  50. VINCRISTINE [Suspect]
     Active Substance: VINCRISTINE
     Indication: CENTRAL NERVOUS SYSTEM NEOPLASM
  51. VINCRISTINE [Suspect]
     Active Substance: VINCRISTINE
     Indication: EWING^S SARCOMA
  52. IFOSFAMIDE. [Suspect]
     Active Substance: IFOSFAMIDE
     Indication: NEPHROBLASTOMA

REACTIONS (7)
  - Pancytopenia [Unknown]
  - Hypertension [Unknown]
  - Febrile neutropenia [Unknown]
  - Anaemia [Unknown]
  - Thrombocytopenia [Unknown]
  - Gastrointestinal haemorrhage [Unknown]
  - Neutropenia [Unknown]
